FAERS Safety Report 16143571 (Version 5)
Quarter: 2020Q3

REPORT INFORMATION
  Report Type: Report from Study
  Country: DE (occurrence: DE)
  Receive Date: 20190401
  Receipt Date: 20190603
  Transmission Date: 20201104
  Serious: Yes (Hospitalization)
  Sender: FDA-Public Use
  Company Number: PHHO2019DE003367

PATIENT
  Age: 44 Year
  Sex: Male
  Weight: 71 kg

DRUGS (27)
  1. NAPORAFENIB. [Suspect]
     Active Substance: NAPORAFENIB
     Indication: NON-SMALL CELL LUNG CANCER METASTATIC
     Dosage: 400 MG, BID
     Route: 048
     Dates: start: 20190129, end: 20190320
  2. TAVOR [Concomitant]
     Indication: SEDATION
     Dosage: UNK
     Route: 065
     Dates: start: 20190123, end: 20190124
  3. FRESUBIN [Concomitant]
     Active Substance: AMINO ACIDS\DEXTROSE\ELECTROLYTES NOS\SOYBEAN OIL\VITAMINS
     Indication: WEIGHT DECREASED
     Dosage: UNK
     Dates: start: 20190308
  4. TRAMADOL. [Concomitant]
     Active Substance: TRAMADOL
     Indication: PALMAR-PLANTAR ERYTHRODYSAESTHESIA SYNDROME
     Dosage: UNK
     Route: 065
     Dates: start: 20190403, end: 20190415
  5. SOVENTOL [Concomitant]
     Indication: RASH
     Dosage: UNK
     Route: 065
     Dates: start: 20190213, end: 20190307
  6. VOMEX A [Concomitant]
     Active Substance: DIMENHYDRINATE
     Indication: NAUSEA
     Dosage: UNK
     Route: 065
     Dates: start: 20190305, end: 20190305
  7. LAXANS [Concomitant]
     Indication: CONSTIPATION
     Dosage: UNK
     Route: 065
     Dates: start: 20190305, end: 20190319
  8. FUCIDINE [Concomitant]
     Indication: DERMATITIS ACNEIFORM
     Dosage: UNK
     Route: 065
     Dates: start: 20190308, end: 20190315
  9. NOVAMINSULFON [Concomitant]
     Active Substance: METAMIZOLE
     Indication: PYREXIA
     Dosage: UNK
     Route: 065
     Dates: start: 20190226, end: 20190310
  10. CLINDAMYCIN. [Concomitant]
     Active Substance: CLINDAMYCIN
     Indication: DERMATITIS ACNEIFORM
     Dosage: UNK
     Route: 065
     Dates: start: 20190305, end: 20190308
  11. FUCIDINE [Concomitant]
     Indication: RASH
  12. DERMATOP [Concomitant]
     Active Substance: PREDNICARBATE
     Indication: DERMATITIS ACNEIFORM
     Dosage: UNK
     Route: 065
     Dates: start: 20190309, end: 20190415
  13. OPTIDERM [Concomitant]
     Indication: DRY SKIN
  14. TRAMETINIB [Suspect]
     Active Substance: TRAMETINIB
     Indication: NON-SMALL CELL LUNG CANCER METASTATIC
     Dosage: 1 MG, QD
     Route: 048
     Dates: start: 20190129, end: 20190320
  15. SOVENTOL [Concomitant]
     Indication: DERMATITIS ACNEIFORM
  16. DOXYCYCLIN [Concomitant]
     Active Substance: DOXYCYCLINE
     Indication: DERMATITIS ACNEIFORM
     Dosage: UNK
     Route: 065
     Dates: start: 20190308, end: 20190318
  17. GLYCEROL [Concomitant]
     Active Substance: GLYCERIN
     Indication: CONSTIPATION
     Dosage: UNK
     Route: 065
     Dates: start: 20190308, end: 20190311
  18. STEROFUNDIN [Concomitant]
     Active Substance: CALCIUM CHLORIDE\MAGNESIUM CHLORIDE\POTASSIUM CHLORIDE\SODIUM ACETATE\SODIUM CHLORIDE
     Dosage: UNK
     Route: 065
     Dates: start: 20190328, end: 20190328
  19. MINOCYCLINE [Concomitant]
     Active Substance: MINOCYCLINE HYDROCHLORIDE
     Indication: DERMATITIS ACNEIFORM
     Dosage: UNK
     Route: 065
     Dates: start: 20190305, end: 20190311
  20. MCP [Concomitant]
     Active Substance: METOCLOPRAMIDE HYDROCHLORIDE
     Indication: PROPHYLAXIS
     Dosage: UNK
     Route: 065
     Dates: start: 20190124, end: 20190124
  21. STEROFUNDIN [Concomitant]
     Active Substance: CALCIUM CHLORIDE\MAGNESIUM CHLORIDE\POTASSIUM CHLORIDE\SODIUM ACETATE\SODIUM CHLORIDE
     Indication: VOMITING
     Dosage: UNK
     Route: 065
     Dates: start: 20190212, end: 20190212
  22. STEROFUNDIN [Concomitant]
     Active Substance: CALCIUM CHLORIDE\MAGNESIUM CHLORIDE\POTASSIUM CHLORIDE\SODIUM ACETATE\SODIUM CHLORIDE
     Dosage: UNK
     Route: 065
     Dates: start: 20190403, end: 20190403
  23. MOVICOL [Concomitant]
     Active Substance: POLYETHYLENE GLYCOL 3350\POTASSIUM CHLORIDE\SODIUM BICARBONATE\SODIUM CHLORIDE
     Indication: CONSTIPATION
     Dosage: UNK
     Route: 065
     Dates: start: 20190305, end: 20190319
  24. DEXAMETHASONE. [Concomitant]
     Active Substance: DEXAMETHASONE
     Indication: NAUSEA
     Dosage: UNK
     Route: 065
     Dates: start: 20190308, end: 20190311
  25. STEROFUNDIN [Concomitant]
     Active Substance: CALCIUM CHLORIDE\MAGNESIUM CHLORIDE\POTASSIUM CHLORIDE\SODIUM ACETATE\SODIUM CHLORIDE
     Indication: PROPHYLAXIS
     Dosage: UNK
     Route: 065
     Dates: start: 20190308, end: 20190311
  26. DERMATOP [Concomitant]
     Active Substance: PREDNICARBATE
     Indication: RASH
  27. OPTIDERM [Concomitant]
     Indication: RASH
     Dosage: UNK
     Route: 065
     Dates: start: 20190319, end: 20190415

REACTIONS (1)
  - Gastroenteritis [Recovered/Resolved]

NARRATIVE: CASE EVENT DATE: 20190321
